FAERS Safety Report 9606991 (Version 1)
Quarter: 2013Q4

REPORT INFORMATION
  Report Type: Report from Study
  Country: BE (occurrence: BE)
  Receive Date: 20131009
  Receipt Date: 20131009
  Transmission Date: 20140711
  Serious: Yes (Death, Hospitalization, Other)
  Sender: FDA-Public Use
  Company Number: BE-AMGEN-BELCT2013070184

PATIENT
  Age: 76 Year
  Sex: Female

DRUGS (5)
  1. ETANERCEPT [Suspect]
     Indication: RHEUMATOID ARTHRITIS
     Dosage: 25 MG, 2 TIMES/WK
     Route: 058
     Dates: start: 20030611, end: 20050524
  2. BIOFENAC                           /00372302/ [Concomitant]
     Dosage: 100 MG, QD
     Route: 048
  3. CLIMARA [Concomitant]
     Dosage: UNK
  4. MEDROL                             /00049601/ [Concomitant]
     Dosage: 6 MG, QD
     Route: 048
  5. ACTONEL [Concomitant]
     Dosage: 35 MG, QWK
     Route: 048
     Dates: start: 20040907

REACTIONS (2)
  - Pancreatic carcinoma stage III [Fatal]
  - Pancreatitis [Unknown]
